FAERS Safety Report 13092738 (Version 1)
Quarter: 2017Q1

REPORT INFORMATION
  Report Type: Spontaneous
  Country: US (occurrence: US)
  Receive Date: 20170105
  Receipt Date: 20170105
  Transmission Date: 20170428
  Serious: Yes (Hospitalization, Disabling)
  Sender: FDA-Public Use
  Company Number: None

PATIENT
  Age: 29 Year
  Sex: Female
  Weight: 128.25 kg

DRUGS (3)
  1. ODANSETRON HCL DR REDDY^S LAB [Suspect]
     Active Substance: ONDANSETRON HYDROCHLORIDE
     Indication: NAUSEA
     Dosage: ?          QUANTITY:30 TABLET(S);?
     Route: 048
     Dates: start: 20151106, end: 20151106
  2. ODANSETRON HCL DR REDDY^S LAB [Suspect]
     Active Substance: ONDANSETRON HYDROCHLORIDE
     Indication: MIGRAINE
     Dosage: ?          QUANTITY:30 TABLET(S);?
     Route: 048
     Dates: start: 20151106, end: 20151106
  3. SUMATRIPTAN NORTHSTAR RX [Suspect]
     Active Substance: SUMATRIPTAN
     Indication: MIGRAINE
     Dosage: ?          QUANTITY:9 TABLET(S);?
     Route: 048
     Dates: start: 20151106, end: 20151106

REACTIONS (12)
  - Hypoaesthesia [None]
  - Vomiting [None]
  - Dyspepsia [None]
  - Disorientation [None]
  - Gastric atony [None]
  - Blindness unilateral [None]
  - Tooth erosion [None]
  - Loss of employment [None]
  - Palpitations [None]
  - Tooth disorder [None]
  - Middle insomnia [None]
  - Facial paralysis [None]

NARRATIVE: CASE EVENT DATE: 20151106
